FAERS Safety Report 23294682 (Version 1)
Quarter: 2023Q4

REPORT INFORMATION
  Report Type: Spontaneous
  Country: US (occurrence: None)
  Receive Date: 20231213
  Receipt Date: 20231213
  Transmission Date: 20240110
  Serious: Yes (Other)
  Sender: FDA-Public Use
  Company Number: None

PATIENT
  Age: 38 Year
  Sex: Male
  Weight: 74.4 kg

DRUGS (8)
  1. OMAVELOXOLONE [Suspect]
     Active Substance: OMAVELOXOLONE
     Indication: Friedreich^s ataxia
     Dosage: 150 MG  DAILY ORAL?
     Route: 048
     Dates: start: 20230703
  2. WARFARIN [Suspect]
     Active Substance: WARFARIN
  3. eplerenone 25mg QD [Concomitant]
  4. alprazolam 0.25mg QHS PRN [Concomitant]
  5. cyclobenzaprine 10mg TID PRN [Concomitant]
  6. sacubitril-valsartan 97-103mg BID [Concomitant]
  7. dapagliflozin 10mg QD [Concomitant]
  8. carvedilol 12.5mg BID [Concomitant]

REACTIONS (1)
  - Anticoagulation drug level below therapeutic [None]
